FAERS Safety Report 14191169 (Version 2)
Quarter: 2017Q4

REPORT INFORMATION
  Report Type: Report from Study
  Country: US (occurrence: US)
  Receive Date: 20171115
  Receipt Date: 20171226
  Transmission Date: 20180321
  Serious: Yes (Hospitalization)
  Sender: FDA-Public Use
  Company Number: US-SA-2017SA197676

PATIENT
  Age: 52 Year
  Sex: Male
  Weight: 94.3 kg

DRUGS (2)
  1. LEMTRADA [Suspect]
     Active Substance: ALEMTUZUMAB
     Indication: MULTIPLE SCLEROSIS
     Route: 041
     Dates: start: 20171002, end: 20171005
  2. LEMTRADA [Suspect]
     Active Substance: ALEMTUZUMAB
     Indication: MULTIPLE SCLEROSIS
     Route: 041
     Dates: start: 20171009, end: 20171009

REACTIONS (14)
  - Pulmonary oedema [Unknown]
  - Dyspnoea exertional [Unknown]
  - Pneumonia [Unknown]
  - Cough [Not Recovered/Not Resolved]
  - Chest pain [Not Recovered/Not Resolved]
  - Wheezing [Unknown]
  - Fatigue [Unknown]
  - Dyspnoea [Not Recovered/Not Resolved]
  - Nasal congestion [Not Recovered/Not Resolved]
  - Chest discomfort [Not Recovered/Not Resolved]
  - Pulse abnormal [Recovering/Resolving]
  - Productive cough [Not Recovered/Not Resolved]
  - Oedema peripheral [Unknown]
  - Rhonchi [Not Recovered/Not Resolved]

NARRATIVE: CASE EVENT DATE: 201710
